FAERS Safety Report 5348088-8 (Version None)
Quarter: 2007Q2

REPORT INFORMATION
  Report Type: 
  Country: None (occurrence: None)
  Receive Date: 20070514
  Receipt Date: 20060912
  Transmission Date: 20071010
  Serious: Yes (Other)
  Sender: FDA-Public Use
  Company Number: 2006-04966

PATIENT
  Age: 78 Year
  Sex: Female

DRUGS (2)
  1. ESTRADIOL [Suspect]
     Indication: MENOPAUSAL SYMPTOMS
     Dosage: ORAL
     Route: 048
     Dates: start: 19790101, end: 20030101
  2. OTHER HORMONE REPLACEMENT MEDICATIONS() [Suspect]
     Indication: MENOPAUSAL SYMPTOMS
     Dates: start: 19790101, end: 20030101

REACTIONS (1)
  - BREAST CANCER FEMALE [None]
